FAERS Safety Report 13673008 (Version 1)
Quarter: 2017Q2

REPORT INFORMATION
  Report Type: Spontaneous
  Country: US (occurrence: US)
  Receive Date: 20170621
  Receipt Date: 20170621
  Transmission Date: 20170830
  Serious: Yes (Other)
  Sender: FDA-Public Use
  Company Number: US-WEST-WARD PHARMACEUTICALS CORP.-US-H14001-17-02061

PATIENT
  Age: 57 Year
  Sex: Male
  Weight: 88.53 kg

DRUGS (7)
  1. ABRAXANE [Suspect]
     Active Substance: PACLITAXEL
     Indication: TONSIL CANCER
     Route: 065
     Dates: start: 20151123, end: 20160516
  2. CETUXIMAB. [Suspect]
     Active Substance: CETUXIMAB
     Indication: METASTASES TO LUNG
  3. CETUXIMAB. [Suspect]
     Active Substance: CETUXIMAB
     Indication: TONSIL CANCER
     Route: 065
     Dates: start: 20151123, end: 20160516
  4. CARBOPLATIN. [Suspect]
     Active Substance: CARBOPLATIN
     Indication: TONSIL CANCER
     Route: 065
     Dates: start: 20151123, end: 20160516
  5. ABRAXANE [Suspect]
     Active Substance: PACLITAXEL
     Indication: METASTASES TO LUNG
  6. NEUPOGEN [Concomitant]
     Active Substance: FILGRASTIM
     Indication: PRODUCT USED FOR UNKNOWN INDICATION
     Route: 065
     Dates: start: 2016
  7. CARBOPLATIN. [Suspect]
     Active Substance: CARBOPLATIN
     Indication: METASTASES TO LUNG
     Dates: start: 20160516

REACTIONS (6)
  - Metastases to lung [Unknown]
  - Disease progression [Unknown]
  - Neutropenia [Unknown]
  - Paronychia [Recovering/Resolving]
  - Dermatitis acneiform [Unknown]
  - Folliculitis [Unknown]

NARRATIVE: CASE EVENT DATE: 20151228
